FAERS Safety Report 6814228-4 (Version None)
Quarter: 2010Q3

REPORT INFORMATION
  Report Type: 
  Country: None (occurrence: None)
  Receive Date: 20100702
  Receipt Date: 20100624
  Transmission Date: 20110219
  Serious: Yes (Hospitalization)
  Sender: FDA-Public Use
  Company Number: US-JNJFOC-20100608358

PATIENT
  Sex: Female
  Weight: 63.5 kg

DRUGS (9)
  1. DURAGESIC-100 [Suspect]
     Indication: FIBROMYALGIA
     Route: 062
  2. DURAGESIC-100 [Suspect]
     Indication: SYSTEMIC LUPUS ERYTHEMATOSUS
     Route: 062
  3. DURAGESIC-100 [Suspect]
     Route: 062
  4. DURAGESIC-100 [Suspect]
     Route: 062
  5. VITAMIN B-12 [Concomitant]
     Indication: SYSTEMIC LUPUS ERYTHEMATOSUS
     Route: 030
  6. CELEXA [Concomitant]
     Indication: ANXIETY
     Route: 048
  7. DEXILANT [Concomitant]
     Indication: GASTRIC DISORDER
     Route: 048
  8. SANDOSTATIN [Concomitant]
     Indication: CLOSTRIDIAL INFECTION
     Route: 050
  9. DAVP [Concomitant]
     Indication: THROMBOSIS
     Route: 055

REACTIONS (2)
  - INFECTION [None]
  - PAIN [None]
